FAERS Safety Report 5932806-1 (Version None)
Quarter: 2008Q4

REPORT INFORMATION
  Report Type: 
  Country: None (occurrence: None)
  Receive Date: 20081028
  Receipt Date: 20081027
  Transmission Date: 20090506
  Serious: Yes (Hospitalization)
  Sender: FDA-Public Use
  Company Number: B0543654A

PATIENT
  Age: 62 Year
  Sex: Male

DRUGS (15)
  1. HEPSERA [Suspect]
     Indication: DRUG USE FOR UNKNOWN INDICATION
     Dosage: 10MG PER DAY
     Route: 065
     Dates: start: 20040501, end: 20070901
  2. HEPSERA [Suspect]
     Route: 065
     Dates: start: 20070901, end: 20080301
  3. HEPSERA [Suspect]
     Route: 065
     Dates: start: 20080301, end: 20080701
  4. ZEFFIX [Suspect]
     Indication: HEPATITIS B VIRUS TEST
     Dosage: 100MG PER DAY
     Route: 048
     Dates: start: 20060401, end: 20070901
  5. ZEFFIX [Suspect]
     Indication: DRUG USE FOR UNKNOWN INDICATION
     Route: 065
     Dates: start: 20070901, end: 20080301
  6. ZEFFIX [Suspect]
     Route: 065
     Dates: start: 20080301, end: 20080701
  7. TRUVADA [Suspect]
     Indication: DRUG USE FOR UNKNOWN INDICATION
     Route: 048
     Dates: start: 20080708, end: 20080801
  8. VIDEX [Suspect]
     Indication: DRUG USE FOR UNKNOWN INDICATION
     Route: 065
     Dates: start: 20050901, end: 20080701
  9. SUSTIVA [Concomitant]
     Dates: start: 20050901
  10. REYATAZ [Concomitant]
     Dates: start: 20050901
  11. NORVIR [Concomitant]
     Dates: start: 20050901
  12. NORSET [Concomitant]
     Dates: end: 20080801
  13. CRESTOR [Concomitant]
     Dates: end: 20080801
  14. TRIZIVIR [Concomitant]
     Dates: end: 20050901
  15. VIREAD [Concomitant]
     Dates: start: 20040501, end: 20050501

REACTIONS (16)
  - ANOREXIA [None]
  - ASTHENIA [None]
  - CONDITION AGGRAVATED [None]
  - CYTOLYTIC HEPATITIS [None]
  - FANCONI SYNDROME [None]
  - HYDRONEPHROSIS [None]
  - HYPERBILIRUBINAEMIA [None]
  - LIPODYSTROPHY ACQUIRED [None]
  - MICROLITHIASIS [None]
  - NAUSEA [None]
  - RENAL FAILURE [None]
  - RENAL IMPAIRMENT [None]
  - THERAPEUTIC RESPONSE UNEXPECTED [None]
  - URINARY TRACT INFECTION [None]
  - VIRAEMIA [None]
  - WEIGHT DECREASED [None]
